FAERS Safety Report 9859049 (Version 1)
Quarter: 2014Q1

REPORT INFORMATION
  Report Type: Report from Study
  Country: US (occurrence: US)
  Receive Date: 20140131
  Receipt Date: 20140131
  Transmission Date: 20141002
  Serious: Yes (Hospitalization, Other)
  Sender: FDA-Public Use
  Company Number: US-ALEXION-A201400260

PATIENT
  Sex: 0

DRUGS (12)
  1. SOLIRIS [Suspect]
     Indication: HAEMOLYTIC URAEMIC SYNDROME
     Dosage: 900 MG, QW
     Route: 042
     Dates: start: 20140110
  2. ACETYLCYSTEINE [Concomitant]
     Indication: LUNG DISORDER
     Dosage: 600 MG, TID
     Dates: start: 20120607
  3. CLONIDINE [Concomitant]
     Indication: HYPERTENSION
     Dosage: .1 MG, Q 8 HOURS
     Dates: start: 20120607
  4. EPOETIN [Concomitant]
     Indication: PRODUCT USED FOR UNKNOWN INDICATION
     Dosage: 2,000 UNITS, WEEKLY
     Route: 058
     Dates: start: 20120607
  5. LASIX                              /00032601/ [Concomitant]
     Indication: PRODUCT USED FOR UNKNOWN INDICATION
     Dosage: 40-120 MG, PRN, QD
     Dates: start: 20120607
  6. LEVOTHYROXINE [Concomitant]
     Indication: PRODUCT USED FOR UNKNOWN INDICATION
     Dosage: 50 ?G, QD
     Dates: start: 20120607
  7. LOSARTAN [Concomitant]
     Indication: HYPERTENSION
     Dosage: 100 MG, BID
     Dates: start: 20120607
  8. NEPHROCAPS                         /01801401/ [Concomitant]
     Indication: PRODUCT USED FOR UNKNOWN INDICATION
     Dosage: 1 TABLET, QD
     Dates: start: 20120607
  9. PREDNISONE [Concomitant]
     Indication: STEROID THERAPY
     Dosage: 5 MG, QD
     Dates: start: 20120607
  10. PRILOSEC                           /00661201/ [Concomitant]
     Indication: PRODUCT USED FOR UNKNOWN INDICATION
     Dosage: 20 MG, QD
     Dates: start: 20120607
  11. REMERON [Concomitant]
     Indication: DEPRESSION
     Dosage: 1/4 TABLET, QD
     Dates: start: 20120607
  12. NORVASC [Concomitant]
     Indication: HYPERTENSION
     Dosage: 10 MG, QD
     Dates: start: 20120607

REACTIONS (3)
  - Escherichia infection [Recovered/Resolved]
  - Renal transplant [Unknown]
  - Renal haematoma [Unknown]
